FAERS Safety Report 8071831-4 (Version None)
Quarter: 2012Q1

REPORT INFORMATION
  Report Type: 
  Country: None (occurrence: None)
  Receive Date: 20120126
  Receipt Date: 20120117
  Transmission Date: 20120608
  Serious: No
  Sender: FDA-Public Use
  Company Number: US-BIOGENIDEC-2012BI002107

PATIENT
  Sex: Female

DRUGS (2)
  1. TYSABRI [Suspect]
     Indication: MULTIPLE SCLEROSIS
     Route: 042
     Dates: start: 20070516, end: 20080403
  2. TYSABRI [Suspect]
     Route: 042
     Dates: start: 20081113

REACTIONS (3)
  - WEIGHT DECREASED [None]
  - ANXIETY [None]
  - FATIGUE [None]
